FAERS Safety Report 9018743 (Version 1)
Quarter: 2013Q1

REPORT INFORMATION
  Report Type: Spontaneous
  Country: US (occurrence: US)
  Receive Date: 20130118
  Receipt Date: 20130118
  Transmission Date: 20140127
  Serious: No
  Sender: FDA-Public Use
  Company Number: US-PFIZER INC-2013022221

PATIENT
  Age: 82 Year
  Sex: Female

DRUGS (2)
  1. LYRICA [Suspect]
     Dosage: 150 UNK, THREE TIMES A DAY
  2. OXYCODONE HYDROCHLORIDE [Suspect]
     Dosage: 10 MG, 5 TIMES A DAY

REACTIONS (1)
  - Oedema peripheral [Unknown]
